FAERS Safety Report 15245749 (Version 4)
Quarter: 2019Q2

REPORT INFORMATION
  Report Type: Spontaneous
  Country: IR (occurrence: IR)
  Receive Date: 20180806
  Receipt Date: 20190529
  Transmission Date: 20190711
  Serious: Yes (Hospitalization, Other)
  Sender: FDA-Public Use
  Company Number: PHHY2018IR055661

PATIENT
  Age: 42 Year
  Sex: Female

DRUGS (2)
  1. PREDNISOLONE. [Suspect]
     Active Substance: PREDNISOLONE
     Indication: HENOCH-SCHONLEIN PURPURA
     Dosage: 5 MG, TID
     Route: 065
  2. AZATHIOPRINE. [Suspect]
     Active Substance: AZATHIOPRINE
     Indication: HENOCH-SCHONLEIN PURPURA
     Dosage: 50 MG, QD
     Route: 065

REACTIONS (6)
  - Escherichia infection [Unknown]
  - Gastrointestinal necrosis [Unknown]
  - Necrosis [Unknown]
  - Swelling [Unknown]
  - Rectal perforation [Unknown]
  - Product use in unapproved indication [Unknown]
